FAERS Safety Report 5853414-7 (Version None)
Quarter: 2008Q3

REPORT INFORMATION
  Report Type: 
  Country: None (occurrence: None)
  Receive Date: 20080821
  Receipt Date: 20080815
  Transmission Date: 20090109
  Serious: Yes (Hospitalization)
  Sender: FDA-Public Use
  Company Number: CH-PFIZER INC-2008067897

PATIENT
  Sex: Male
  Weight: 71 kg

DRUGS (9)
  1. SORTIS [Suspect]
     Route: 048
     Dates: start: 20080715, end: 20080730
  2. AUGMENTIN '125' [Suspect]
     Indication: PNEUMONIA BACTERIAL
     Route: 048
     Dates: start: 20080718, end: 20080726
  3. ASPIRIN [Concomitant]
     Dosage: DAILY DOSE:100MG
     Route: 048
  4. PLAVIX [Concomitant]
     Dosage: DAILY DOSE:75MG
     Route: 048
  5. DILATREND [Concomitant]
     Dosage: DAILY DOSE:6.25MG
     Route: 048
  6. RAMIPRIL [Concomitant]
     Dosage: DAILY DOSE:1.25MG
     Route: 048
  7. TOREM [Concomitant]
     Dosage: DAILY DOSE:10MG
     Route: 048
  8. LEXOTANIL [Concomitant]
     Route: 048
  9. FRAXIPARINE [Concomitant]
     Dosage: DAILY DOSE:.6ML
     Route: 058

REACTIONS (1)
  - LIVER INJURY [None]
